FAERS Safety Report 25263069 (Version 1)
Quarter: 2025Q2

REPORT INFORMATION
  Report Type: Spontaneous
  Country: US (occurrence: None)
  Receive Date: 20250501
  Receipt Date: 20250501
  Transmission Date: 20250717
  Serious: No
  Sender: FDA-CTU
  Company Number: None

PATIENT
  Age: 24 Year
  Sex: Female

DRUGS (1)
  1. LIDOCAINE [Suspect]
     Active Substance: LIDOCAINE
     Indication: Pain
     Dates: start: 20240816, end: 20240816

REACTIONS (3)
  - Oesophageal haemorrhage [None]
  - Gastric haemorrhage [None]
  - Intestinal haemorrhage [None]

NARRATIVE: CASE EVENT DATE: 20240816
